FAERS Safety Report 5702516-4 (Version None)
Quarter: 2008Q2

REPORT INFORMATION
  Report Type: 
  Country: None (occurrence: None)
  Receive Date: 20080410
  Receipt Date: 20080410
  Transmission Date: 20081010
  Serious: Yes (Death)
  Sender: FDA-Public Use
  Company Number: None

PATIENT
  Age: 42 Year
  Sex: Female
  Weight: 80 kg

DRUGS (3)
  1. HALOPERIDOL DECANOATE [Suspect]
     Indication: SCHIZOPHRENIA
     Dosage: 100MG EVERY 3 WEEKS IM
     Route: 030
     Dates: start: 20080311, end: 20080311
  2. RISPERDAL [Concomitant]
  3. ZYPREXA [Concomitant]

REACTIONS (7)
  - DYSARTHRIA [None]
  - FAECALOMA [None]
  - HYPEROSMOLAR STATE [None]
  - ILL-DEFINED DISORDER [None]
  - MENTAL STATUS CHANGES [None]
  - NEUROMYOPATHY [None]
  - THERAPEUTIC AGENT TOXICITY [None]
